FAERS Safety Report 13284997 (Version 1)
Quarter: 2017Q1

REPORT INFORMATION
  Report Type: Spontaneous
  Country: US (occurrence: US)
  Receive Date: 20170301
  Receipt Date: 20170301
  Transmission Date: 20170428
  Serious: Yes (Disabling)
  Sender: FDA-Public Use
  Company Number: None

PATIENT
  Age: 74 Year
  Sex: Male
  Weight: 63 kg

DRUGS (6)
  1. BREO ELLIPTA [Concomitant]
     Active Substance: FLUTICASONE FUROATE\VILANTEROL TRIFENATATE
  2. PROAIR HFA [Concomitant]
     Active Substance: ALBUTEROL SULFATE
  3. FLUTICASONE PROP 50 MCG SPRAY. [Suspect]
     Active Substance: FLUTICASONE PROPIONATE
     Indication: PRODUCT USED FOR UNKNOWN INDICATION
     Dosage: ?          OTHER STRENGTH:MCG;?
     Route: 055
  4. FLUTICASONE. [Concomitant]
     Active Substance: FLUTICASONE
  5. VITAMINS [Concomitant]
     Active Substance: VITAMINS
  6. AZELESTINE [Concomitant]
     Active Substance: AZELASTINE

REACTIONS (1)
  - Retinal detachment [None]

NARRATIVE: CASE EVENT DATE: 20170124
